FAERS Safety Report 26141021 (Version 1)
Quarter: 2025Q4

REPORT INFORMATION
  Report Type: Report from Study
  Country: US (occurrence: None)
  Receive Date: 20251210
  Receipt Date: 20251210
  Transmission Date: 20260118
  Serious: Yes (Hospitalization, Other)
  Sender: UCB
  Company Number: UG-069-000022279

PATIENT
  Age: 59 Year

DRUGS (1)
  1. BIMEKIZUMAB [Suspect]
     Active Substance: BIMEKIZUMAB
     Indication: Product used for unknown indication
     Dosage: 320 MILLIGRAM, EV 4 WEEKS

REACTIONS (5)
  - Urinary tract infection [Unknown]
  - Nephrolithiasis [Unknown]
  - Hospitalisation [Unknown]
  - Nerve compression [Unknown]
  - Rotator cuff syndrome [Unknown]
